FAERS Safety Report 5149260-2 (Version None)
Quarter: 2006Q4

REPORT INFORMATION
  Report Type: 
  Country: None (occurrence: None)
  Receive Date: 20061113
  Receipt Date: 20060104
  Transmission Date: 20070319
  Serious: Yes (Death)
  Sender: FDA-Public Use
  Company Number: 422754

PATIENT
  Age: 73 Year
  Sex: Male

DRUGS (6)
  1. CARVEDILOL [Suspect]
     Indication: CARDIAC VALVE DISEASE
     Dosage: 3.75MG PER DAY
     Route: 048
     Dates: start: 20040802, end: 20050126
  2. LASIX [Concomitant]
     Dates: start: 20000131, end: 20050126
  3. ALDACTONE [Concomitant]
     Dates: start: 20000131, end: 20050126
  4. RENIVACE [Concomitant]
     Dates: start: 20000131, end: 20050126
  5. ALLOPURINOL [Concomitant]
     Dates: start: 20000828, end: 20050126
  6. NORVASC [Concomitant]
     Dates: start: 20000410, end: 20050126

REACTIONS (2)
  - AORTIC VALVE INCOMPETENCE [None]
  - CARDIAC FAILURE ACUTE [None]
